FAERS Safety Report 21522073 (Version 1)
Quarter: 2022Q4

REPORT INFORMATION
  Report Type: Spontaneous
  Country: US (occurrence: None)
  Receive Date: 20221027
  Receipt Date: 20221027
  Transmission Date: 20230112
  Serious: Yes (Other)
  Sender: FDA-Public Use
  Company Number: None

PATIENT
  Age: 43 Year
  Sex: Male
  Weight: 76 kg

DRUGS (1)
  1. IODIXANOL [Suspect]
     Active Substance: IODIXANOL
     Dosage: FREQUENCY : ONCE;?
     Route: 048
     Dates: start: 20220829, end: 20220829

REACTIONS (3)
  - Angioedema [None]
  - Rash [None]
  - Contrast media reaction [None]

NARRATIVE: CASE EVENT DATE: 20220829
